FAERS Safety Report 8043952-3 (Version None)
Quarter: 2012Q1

REPORT INFORMATION
  Report Type: 
  Country: None (occurrence: None)
  Receive Date: 20120113
  Receipt Date: 20120105
  Transmission Date: 20120608
  Serious: Yes (Hospitalization)
  Sender: FDA-Public Use
  Company Number: US-BIOGENIDEC-2011BI038007

PATIENT
  Age: 51 Year
  Sex: Female

DRUGS (5)
  1. AVONEX [Suspect]
     Indication: MULTIPLE SCLEROSIS
     Route: 030
     Dates: start: 20060101, end: 20080101
  2. COPAXONE [Concomitant]
     Indication: MULTIPLE SCLEROSIS
  3. HIGH BLOOD PRESSURE MEDS (NOS) [Concomitant]
     Indication: HYPERTENSION
  4. DIAZEPAM [Concomitant]
     Indication: MUSCLE SPASMS
  5. DIAZEPAM [Concomitant]
     Indication: BACK DISORDER

REACTIONS (4)
  - INFECTION [None]
  - SPINAL DISORDER [None]
  - DRUG ADMINISTERED AT INAPPROPRIATE SITE [None]
  - ARTHRITIS [None]
